FAERS Safety Report 7544079-7 (Version None)
Quarter: 2011Q2

REPORT INFORMATION
  Report Type: 
  Country: None (occurrence: None)
  Receive Date: 20110613
  Receipt Date: 20060207
  Transmission Date: 20111010
  Serious: Yes (Death, Hospitalization, Other)
  Sender: FDA-Public Use
  Company Number: PHHO2006BR02405

PATIENT
  Age: 66 Year
  Sex: Female

DRUGS (5)
  1. DIOVAN HCT [Suspect]
     Indication: HYPERTENSION
     Dosage: 172.5 MG, QD
     Route: 048
     Dates: end: 20051201
  2. LUMIGAN [Concomitant]
     Indication: GLAUCOMA
  3. PERINDOPRIL ERBUMINE [Concomitant]
     Indication: HYPERTENSION
     Dosage: 4 MG, UNK
  4. DIOVAN HCT [Suspect]
     Dates: start: 20051201
  5. ALPRAZ [Concomitant]
     Indication: DEPRESSION

REACTIONS (13)
  - WEIGHT DECREASED [None]
  - BRAIN NEOPLASM [None]
  - VOMITING [None]
  - PNEUMONIA [None]
  - GASTROINTESTINAL DISORDER [None]
  - CONVULSION [None]
  - RESPIRATORY TRACT NEOPLASM [None]
  - RENAL FAILURE ACUTE [None]
  - LUNG INFECTION [None]
  - BLOOD PRESSURE DECREASED [None]
  - SEPTIC SHOCK [None]
  - SYNCOPE [None]
  - BLOOD PRESSURE FLUCTUATION [None]
